FAERS Safety Report 5089073-3 (Version None)
Quarter: 2006Q3

REPORT INFORMATION
  Report Type: 
  Country: None (occurrence: None)
  Receive Date: 20060727
  Receipt Date: 20060530
  Transmission Date: 20061208
  Serious: Yes (Other)
  Sender: FDA-Public Use
  Company Number: 2006070081

PATIENT
  Age: 76 Year
  Sex: Male
  Weight: 103.4201 kg

DRUGS (6)
  1. LYRICA [Suspect]
     Indication: NEUROPATHY
     Dosage: 25 MG (25 MG, 1 IN 1 D)
     Dates: start: 20060412, end: 20060422
  2. ALL OTHER THERAPEUTIC PRODUCTS [Concomitant]
  3. COMBIVENT [Concomitant]
  4. NIASPAN [Concomitant]
  5. FLOMAX [Concomitant]
  6. ANTIHYPERTENSIVES [Concomitant]

REACTIONS (2)
  - DYSPNOEA [None]
  - MENTAL IMPAIRMENT [None]
